FAERS Safety Report 6337121-2 (Version None)
Quarter: 2009Q3

REPORT INFORMATION
  Report Type: 
  Country: None (occurrence: None)
  Receive Date: 20090831
  Receipt Date: 20090814
  Transmission Date: 20100115
  Serious: Yes (Disabling, Other)
  Sender: FDA-Public Use
  Company Number: AUR-APL-2009-00427

PATIENT
  Age: 53 Year
  Sex: Male
  Weight: 66.8 kg

DRUGS (1)
  1. CIPROFLAXACIN [Suspect]
     Indication: PROSTATITIS
     Dosage: 1G
     Dates: start: 20070701, end: 20090801

REACTIONS (6)
  - ANXIETY [None]
  - ASTHENIA [None]
  - DEREALISATION [None]
  - INSOMNIA [None]
  - NERVOUS SYSTEM DISORDER [None]
  - TREMOR [None]
